FAERS Safety Report 12091724 (Version 1)
Quarter: 2016Q1

REPORT INFORMATION
  Report Type: Spontaneous
  Country: US (occurrence: US)
  Receive Date: 20160218
  Receipt Date: 20160218
  Transmission Date: 20160526
  Serious: Yes (Other)
  Sender: FDA-Public Use
  Company Number: US-AMGEN-USASP2016017813

PATIENT
  Age: 70 Year
  Sex: Male

DRUGS (1)
  1. IMLYGIC [Suspect]
     Active Substance: TALIMOGENE LAHERPAREPVEC
     Indication: MALIGNANT MELANOMA STAGE III
     Dosage: 4 MLS, UNK
     Route: 065

REACTIONS (1)
  - Skin necrosis [Unknown]
